FAERS Safety Report 22082795 (Version 1)
Quarter: 2023Q1

REPORT INFORMATION
  Report Type: Spontaneous
  Country: FR (occurrence: None)
  Receive Date: 20230310
  Receipt Date: 20230310
  Transmission Date: 20230417
  Serious: Yes (Hospitalization)
  Sender: FDA-Public Use
  Company Number: 2023A052390

PATIENT
  Age: 66 Year
  Sex: Male
  Weight: 65.3 kg

DRUGS (1)
  1. DAPAGLIFLOZIN [Suspect]
     Active Substance: DAPAGLIFLOZIN
     Indication: Insulin-requiring type 2 diabetes mellitus
     Route: 048
     Dates: start: 202211, end: 20230122

REACTIONS (1)
  - Orchitis [Recovered/Resolved with Sequelae]

NARRATIVE: CASE EVENT DATE: 20230122
